FAERS Safety Report 6960156-3 (Version None)
Quarter: 2010Q3

REPORT INFORMATION
  Report Type: 
  Country: None (occurrence: None)
  Receive Date: 20100901
  Receipt Date: 20100818
  Transmission Date: 20110219
  Serious: Yes (Hospitalization)
  Sender: FDA-Public Use
  Company Number: FR-JNJFOC-20100807206

PATIENT
  Age: 43 Year
  Sex: Male

DRUGS (4)
  1. LEVOFLOXACIN [Suspect]
     Indication: LUNG DISORDER
     Route: 042
  2. CEFTRIAXONE [Suspect]
     Indication: LUNG DISORDER
     Dosage: 2 UNITS
     Route: 042
  3. RIFADIN [Suspect]
     Indication: LUNG DISORDER
     Route: 042
  4. AMOXICILLIN [Concomitant]
     Route: 065

REACTIONS (4)
  - ALTERED STATE OF CONSCIOUSNESS [None]
  - CONFUSIONAL STATE [None]
  - DIARRHOEA [None]
  - SOMNOLENCE [None]
